FAERS Safety Report 5772146-7 (Version None)
Quarter: 2008Q2

REPORT INFORMATION
  Report Type: 
  Country: None (occurrence: None)
  Receive Date: 20080612
  Receipt Date: 20080612
  Transmission Date: 20081010
  Serious: Yes (Hospitalization)
  Sender: FDA-Public Use
  Company Number: None

PATIENT
  Age: 42 Year
  Sex: Male
  Weight: 111 kg

DRUGS (1)
  1. NEOSTIGMINE 1:2000 AMERICAN REGENT [Suspect]
     Indication: ANAESTHESIA REVERSAL
     Dosage: 3 MG ONCE IV
     Route: 042
     Dates: start: 20080208, end: 20080208

REACTIONS (3)
  - DRUG INEFFECTIVE [None]
  - PHARMACEUTICAL PRODUCT COMPLAINT [None]
  - RESPIRATORY DISTRESS [None]
